FAERS Safety Report 8171071-4 (Version None)
Quarter: 2012Q1

REPORT INFORMATION
  Report Type: 
  Country: None (occurrence: None)
  Receive Date: 20120228
  Receipt Date: 20120221
  Transmission Date: 20120608
  Serious: Yes (Hospitalization, Congenital Anomaly, Other)
  Sender: FDA-Public Use
  Company Number: PHHY2012DE015805

PATIENT
  Sex: Male
  Weight: 1.44 kg

DRUGS (3)
  1. FOLIC ACID [Concomitant]
     Dosage: UNK
     Route: 064
  2. ARIPIPRAZOLE [Suspect]
     Dosage: 10 MG, QD
     Route: 064
     Dates: start: 20090628, end: 20100202
  3. OXCARBAZEPINE [Suspect]
     Dosage: 1200 MG, QD
     Route: 064

REACTIONS (12)
  - PREMATURE BABY [None]
  - ANAEMIA [None]
  - FOETAL EXPOSURE TIMING UNSPECIFIED [None]
  - NEONATAL RESPIRATORY DISTRESS SYNDROME [None]
  - ATRIAL SEPTAL DEFECT [None]
  - SEPTUM PELLUCIDUM AGENESIS [None]
  - URINARY TRACT DISORDER [None]
  - CEREBRAL DISORDER [None]
  - BRADYCARDIA NEONATAL [None]
  - PACHYGYRIA [None]
  - HYPERBILIRUBINAEMIA [None]
  - PULMONARY ARTERY STENOSIS CONGENITAL [None]
